FAERS Safety Report 14675391 (Version 1)
Quarter: 2018Q1

REPORT INFORMATION
  Report Type: Spontaneous
  Country: US (occurrence: US)
  Receive Date: 20180323
  Receipt Date: 20180323
  Transmission Date: 20180509
  Serious: No
  Sender: FDA-Public Use
  Company Number: US-PFIZER INC-2018117997

PATIENT
  Age: 53 Year
  Sex: Male

DRUGS (6)
  1. CUMIN. [Concomitant]
     Active Substance: CUMIN
     Indication: ARTHRALGIA
     Dosage: UNK, DAILY
     Route: 048
  2. FLAXSEED [Concomitant]
     Active Substance: FLAX SEED
     Indication: FATTY ACID DEFICIENCY
     Dosage: UNK, DAILY
     Route: 048
  3. ATENOLOL. [Concomitant]
     Active Substance: ATENOLOL
     Indication: HYPERTENSION
     Dosage: 50 MG, DAILY
     Route: 048
  4. CUMIN. [Concomitant]
     Active Substance: CUMIN
     Indication: INFLAMMATION
  5. VITAMIN C [Concomitant]
     Active Substance: ASCORBIC ACID
     Indication: ANTIVIRAL PROPHYLAXIS
     Dosage: UNK, DAILY
     Route: 048
  6. PROCARDIA XL [Suspect]
     Active Substance: NIFEDIPINE
     Indication: HYPERTENSION
     Dosage: 30 MG, DAILY
     Route: 048

REACTIONS (3)
  - Arthralgia [Not Recovered/Not Resolved]
  - Suspected counterfeit product [Unknown]
  - Medication residue present [Unknown]

NARRATIVE: CASE EVENT DATE: 20180320
